FAERS Safety Report 17134476 (Version 1)
Quarter: 2019Q4

REPORT INFORMATION
  Report Type: Spontaneous
  Country: PT (occurrence: PT)
  Receive Date: 20191210
  Receipt Date: 20191210
  Transmission Date: 20200122
  Serious: Yes (Hospitalization, Disabling)
  Sender: FDA-Public Use
  Company Number: PT-MYLANLABS-2019M1120097

PATIENT
  Age: 82 Year
  Sex: Female
  Weight: 79 kg

DRUGS (2)
  1. CARBAMAZEPINE. [Interacting]
     Active Substance: CARBAMAZEPINE
     Indication: TRIGEMINAL NEURALGIA
     Dosage: ATUALMENTE: 12 /12 HORAS. ANTES, AT? SEMANA PASSADA, ERA DE 1X/DIA.
  2. CLARITHROMYCIN. [Suspect]
     Active Substance: CLARITHROMYCIN
     Indication: TONSILLITIS
     Dosage: 2 UNK
     Route: 048
     Dates: start: 20190715, end: 20190716

REACTIONS (5)
  - Mouth ulceration [Recovering/Resolving]
  - Labelled drug-drug interaction medication error [Unknown]
  - Rash macular [Recovering/Resolving]
  - Rash maculo-papular [Recovering/Resolving]
  - Rash [Recovering/Resolving]

NARRATIVE: CASE EVENT DATE: 20190716
